FAERS Safety Report 19087383 (Version 3)
Quarter: 2021Q3

REPORT INFORMATION
  Report Type: Spontaneous
  Country: AU (occurrence: AU)
  Receive Date: 20210402
  Receipt Date: 20210825
  Transmission Date: 20211014
  Serious: Yes (Other)
  Sender: FDA-Public Use
  Company Number: AU-EMD SERONO-9228449

PATIENT
  Age: 38 Year
  Sex: Female

DRUGS (2)
  1. MAVENCLAD [Suspect]
     Active Substance: CLADRIBINE
     Indication: RELAPSING-REMITTING MULTIPLE SCLEROSIS
     Dosage: FIRST YEAR THERAPY
     Route: 048
     Dates: start: 20181111
  2. MAVENCLAD [Suspect]
     Active Substance: CLADRIBINE
     Dosage: SECOND YEAR THERAPY
     Route: 048
     Dates: start: 201912, end: 20200103

REACTIONS (2)
  - Papillary thyroid cancer [Not Recovered/Not Resolved]
  - Epidemic polyarthritis [Recovered/Resolved]

NARRATIVE: CASE EVENT DATE: 202012
